FAERS Safety Report 6004567-1 (Version None)
Quarter: 2008Q4

REPORT INFORMATION
  Report Type: 
  Country: None (occurrence: None)
  Receive Date: 20081216
  Receipt Date: 20081121
  Transmission Date: 20090506
  Serious: No
  Sender: FDA-Public Use
  Company Number: US-BRISTOL-MYERS SQUIBB COMPANY-14406896

PATIENT
  Sex: Female

DRUGS (1)
  1. ABILIFY [Suspect]
     Indication: BIPOLAR DISORDER
     Dosage: 2MG IN THE MORNING,2MG IN THE AFTERNOON AND 3MG AT NIGHT, TOTAL-7MG QD
     Route: 048

REACTIONS (4)
  - DRUG INEFFECTIVE [None]
  - FATIGUE [None]
  - RESTLESSNESS [None]
  - VISION BLURRED [None]
